APPROVED DRUG PRODUCT: CITALOPRAM HYDROBROMIDE
Active Ingredient: CITALOPRAM HYDROBROMIDE
Strength: EQ 20MG BASE
Dosage Form/Route: CAPSULE;ORAL
Application: A077668 | Product #002
Applicant: PHARMOBEDIENT CONSULTING LLC
Approved: Feb 28, 2007 | RLD: No | RS: No | Type: DISCN